FAERS Safety Report 7542451 (Version 9)
Quarter: 2017Q4

REPORT INFORMATION
  Report Type: Spontaneous
  Country: JP (occurrence: JP)
  Receive Date: 20100816
  Receipt Date: 20171117
  Transmission Date: 20180321
  Serious: Yes (Other)
  Sender: FDA-Public Use
  Company Number: JP-PFIZER INC-2010089942

PATIENT
  Age: 66 Year
  Sex: Male
  Weight: 61 kg

DRUGS (6)
  1. CHAMPIX [Suspect]
     Active Substance: VARENICLINE TARTRATE
     Indication: SMOKING CESSATION THERAPY
     Dosage: 0.5 MG, DAILY
     Route: 048
     Dates: start: 20100615, end: 20100617
  2. CHAMPIX [Suspect]
     Active Substance: VARENICLINE TARTRATE
     Dosage: 2 MG, DAILY
     Route: 048
     Dates: start: 20100622, end: 20100628
  3. AMLODIPINE BESILATE [Suspect]
     Active Substance: AMLODIPINE BESYLATE
     Indication: HYPERTENSION
     Dosage: 10 MG, 1X/DAY
     Route: 048
     Dates: start: 20100319
  4. CHAMPIX [Suspect]
     Active Substance: VARENICLINE TARTRATE
     Indication: NICOTINE DEPENDENCE
     Dosage: 1 MG, DAILY
     Route: 048
     Dates: start: 20100618, end: 20100621
  5. CHAMPIX [Suspect]
     Active Substance: VARENICLINE TARTRATE
     Dosage: 0.5 MG, 2X/DAY
     Route: 048
     Dates: start: 20100629, end: 20100701
  6. NAPAGELN [Suspect]
     Active Substance: FELBINAC
     Indication: MUSCLE SPASMS
     Dosage: UNK
     Route: 003
     Dates: start: 20100629, end: 20100702

REACTIONS (13)
  - Oedema peripheral [Not Recovered/Not Resolved]
  - Muscle spasms [Not Recovered/Not Resolved]
  - Rash generalised [Recovering/Resolving]
  - Pruritus [Not Recovered/Not Resolved]
  - Pyrexia [Recovering/Resolving]
  - Skin exfoliation [Recovering/Resolving]
  - Lip swelling [Not Recovered/Not Resolved]
  - Urticaria [Recovering/Resolving]
  - Application site rash [Recovering/Resolving]
  - Blister [Recovering/Resolving]
  - Headache [Recovering/Resolving]
  - Abdominal discomfort [Recovered/Resolved]
  - Stevens-Johnson syndrome [Recovering/Resolving]

NARRATIVE: CASE EVENT DATE: 20100618
